FAERS Safety Report 13653163 (Version 5)
Quarter: 2017Q3

REPORT INFORMATION
  Report Type: Spontaneous
  Country: US (occurrence: US)
  Receive Date: 20170614
  Receipt Date: 20170922
  Transmission Date: 20171127
  Serious: Yes (Other)
  Sender: FDA-Public Use
  Company Number: US-BAYER-2017-112510

PATIENT
  Age: 30 Year
  Sex: Female
  Weight: 96.15 kg

DRUGS (2)
  1. MIRENA [Suspect]
     Active Substance: LEVONORGESTREL
     Indication: CONTRACEPTION
     Dosage: 20 MCG/24HR, CONT
     Route: 015
     Dates: start: 20160502, end: 20170609
  2. MIRENA [Suspect]
     Active Substance: LEVONORGESTREL
     Indication: ENDOMETRIOSIS

REACTIONS (10)
  - Genital haemorrhage [None]
  - Pelvic pain [Recovered/Resolved]
  - Discomfort [None]
  - Uterine perforation [None]
  - Dysmenorrhoea [Recovered/Resolved]
  - Vaginal haemorrhage [None]
  - Hypomenorrhoea [None]
  - Menstruation irregular [None]
  - Menorrhagia [None]
  - Ovarian cyst [None]

NARRATIVE: CASE EVENT DATE: 2017
